FAERS Safety Report 15396815 (Version 1)
Quarter: 2018Q3

REPORT INFORMATION
  Report Type: Spontaneous
  Country: US (occurrence: US)
  Receive Date: 20180918
  Receipt Date: 20180918
  Transmission Date: 20181010
  Serious: No
  Sender: FDA-Public Use
  Company Number: US-SA-2018SA258162

PATIENT
  Age: 53 Year
  Sex: Female
  Weight: 90.7 kg

DRUGS (18)
  1. NORMAL SALINE [Concomitant]
     Active Substance: SODIUM CHLORIDE
     Dosage: 0.9 %
     Route: 042
     Dates: start: 20180504
  2. VITAMIN B COMPLEX [Concomitant]
     Active Substance: CYANOCOBALAMIN\DEXPANTHENOL\NIACINAMIDE\PYRIDOXINE HYDROCHLORIDE\RIBOFLAVIN 5^-PHOSPHATE SODIUM\THIAMINE HYDROCHLORIDE\VITAMIN B COMPLEX
     Dosage: 1 DF, QD
     Route: 048
     Dates: start: 20150312
  3. SODIUM CHLORIDE. [Concomitant]
     Active Substance: SODIUM CHLORIDE
     Dosage: 0.9 %
     Route: 042
     Dates: start: 20180504
  4. HYDROCORTISONE. [Concomitant]
     Active Substance: HYDROCORTISONE
     Indication: ANAPHYLACTIC REACTION
     Dosage: 100 MG, PRN
     Route: 042
     Dates: start: 20180504
  5. STERILE WATER [Concomitant]
     Active Substance: WATER
     Dosage: 1 DF
     Route: 042
     Dates: start: 20180504
  6. EPINEPHRINE. [Concomitant]
     Active Substance: EPINEPHRINE
     Indication: ANAPHYLACTIC REACTION
     Dosage: 0.3 MG, PRN
     Route: 030
     Dates: start: 20180504
  7. TELMISARTAN. [Concomitant]
     Active Substance: TELMISARTAN
     Dosage: 1 DF, QD
     Route: 048
  8. DIPHENHYDRAMINE. [Concomitant]
     Active Substance: DIPHENHYDRAMINE
     Indication: ANAPHYLACTIC REACTION
     Dosage: 50 MG/ML, PRN
     Route: 042
     Dates: start: 20180504
  9. DULOXETINE. [Concomitant]
     Active Substance: DULOXETINE
     Dosage: 1 DF, QD
     Route: 048
     Dates: start: 20180810
  10. COUMADIN [Concomitant]
     Active Substance: WARFARIN SODIUM
     Dosage: 1 DF
     Route: 048
     Dates: start: 20170217
  11. KLONOPIN [Concomitant]
     Active Substance: CLONAZEPAM
     Dosage: 1 DF, QD
     Route: 048
     Dates: start: 20150312
  12. SOTALOL. [Concomitant]
     Active Substance: SOTALOL
     Dosage: 0.5 DF, QD
     Route: 048
     Dates: start: 20150312
  13. VITAMIN D [Concomitant]
     Active Substance: CHOLECALCIFEROL
     Dosage: 1 DF, QD
     Route: 048
     Dates: start: 20150312
  14. FABRAZYME [Suspect]
     Active Substance: AGALSIDASE BETA
     Indication: FABRY^S DISEASE
     Dosage: 0.99 MG/KG, QOW
     Route: 042
  15. CYCLOBENZAPRINE. [Concomitant]
     Active Substance: CYCLOBENZAPRINE
     Dosage: 1 DF, QD
     Route: 048
     Dates: start: 20180309
  16. TRAMADOL. [Concomitant]
     Active Substance: TRAMADOL
     Dosage: 1 DF, QD
     Route: 048
     Dates: start: 20170830
  17. MULTIVITAMIN (16) [Concomitant]
     Active Substance: VITAMINS
     Dosage: 1 DF, QD
     Route: 048
     Dates: start: 20150312
  18. LIDOCAINE. [Concomitant]
     Active Substance: LIDOCAINE
     Dosage: 1 PATCH TOP; 1?2 DAYS
     Dates: start: 20180309

REACTIONS (1)
  - Back pain [Unknown]

NARRATIVE: CASE EVENT DATE: 20180829
